FAERS Safety Report 16242147 (Version 1)
Quarter: 2019Q2

REPORT INFORMATION
  Report Type: Spontaneous
  Country: GB (occurrence: GB)
  Receive Date: 20190426
  Receipt Date: 20190426
  Transmission Date: 20190711
  Serious: Yes (Other)
  Sender: FDA-Public Use
  Company Number: GB-TEVA-2019-GB-1041596

PATIENT
  Sex: Female

DRUGS (1)
  1. ATORVASTATIN [Suspect]
     Active Substance: ATORVASTATIN
     Route: 065

REACTIONS (7)
  - Muscle spasms [Unknown]
  - Cardiac disorder [Unknown]
  - Arthralgia [Unknown]
  - Paraesthesia [Unknown]
  - Palpitations [Unknown]
  - Joint swelling [Unknown]
  - Musculoskeletal chest pain [Unknown]
